FAERS Safety Report 7537006-X (Version None)
Quarter: 2011Q2

REPORT INFORMATION
  Report Type: 
  Country: None (occurrence: None)
  Receive Date: 20110608
  Receipt Date: 20110608
  Transmission Date: 20111010
  Serious: No
  Sender: FDA-Public Use
  Company Number: None

PATIENT
  Age: 90 Year
  Sex: Male
  Weight: 62 kg

DRUGS (1)
  1. FENTANYL-100 [Suspect]
     Indication: PAIN
     Dosage: 50 MCG OTHER TOP
     Route: 061
     Dates: start: 20070322, end: 20110130

REACTIONS (6)
  - MIOSIS [None]
  - FEMUR FRACTURE [None]
  - SEDATION [None]
  - CONVULSION [None]
  - UNRESPONSIVE TO STIMULI [None]
  - FALL [None]
